FAERS Safety Report 19645767 (Version 1)
Quarter: 2021Q3

REPORT INFORMATION
  Report Type: Spontaneous
  Country: FR (occurrence: FR)
  Receive Date: 20210802
  Receipt Date: 20210802
  Transmission Date: 20211014
  Serious: Yes (Other)
  Sender: FDA-Public Use
  Company Number: FR-AUROBINDO-AUR-APL-2021-032598

PATIENT
  Age: 75 Year
  Sex: Male

DRUGS (3)
  1. SERTRALINE [Suspect]
     Active Substance: SERTRALINE HYDROCHLORIDE
     Indication: DEPRESSION
     Dosage: 25 MILLIGRAM, ONCE A DAY
     Route: 048
     Dates: start: 20210414, end: 20210426
  2. KARDEGIC [Interacting]
     Active Substance: ASPIRIN DL-LYSINE
     Indication: PROPHYLAXIS
     Dosage: 75 MILLIGRAM, ONCE A DAY
     Route: 048
  3. BRILIQUE [Interacting]
     Active Substance: TICAGRELOR
     Indication: PROPHYLAXIS
     Dosage: 180 MILLIGRAM, ONCE A DAY
     Route: 048

REACTIONS (1)
  - Ecchymosis [Recovered/Resolved]

NARRATIVE: CASE EVENT DATE: 20210414
